FAERS Safety Report 8125736-0 (Version None)
Quarter: 2012Q1

REPORT INFORMATION
  Report Type: 
  Country: None (occurrence: None)
  Receive Date: 20120209
  Receipt Date: 20120201
  Transmission Date: 20120608
  Serious: Yes (Other)
  Sender: FDA-Public Use
  Company Number: GB-PFIZER INC-2008019019

PATIENT
  Age: 68 Year
  Sex: Female
  Weight: 58 kg

DRUGS (9)
  1. PREDNISOLONE [Suspect]
     Indication: RHEUMATOID ARTHRITIS
     Dosage: EVERY DAY
     Route: 048
     Dates: start: 19960101
  2. REMICADE [Suspect]
     Indication: RHEUMATOID ARTHRITIS
     Dosage: WEEKLY
     Route: 042
     Dates: start: 20020513, end: 20040305
  3. CO-DYDRAMOL [Concomitant]
     Indication: ARTHRALGIA
     Route: 048
  4. ZOPICLONE [Concomitant]
     Indication: SLEEP DISORDER
     Route: 048
  5. ETANERCEPT [Suspect]
     Indication: RHEUMATOID ARTHRITIS
     Dosage: 2 EVERY 1 WEEKS
     Route: 058
     Dates: start: 20040712, end: 20041112
  6. PLAQUENIL [Concomitant]
  7. FOSAMAX [Concomitant]
     Dosage: WEEKLY
     Route: 048
     Dates: start: 20020101
  8. LISINOPRIL [Concomitant]
     Indication: HYPERTENSION
     Route: 048
  9. AMITRIPTYLINE [Concomitant]

REACTIONS (3)
  - ECZEMA [None]
  - BASAL CELL CARCINOMA [None]
  - SKIN GRAFT [None]
